FAERS Safety Report 9523298 (Version 5)
Quarter: 2015Q1

REPORT INFORMATION
  Report Type: Spontaneous
  Country: US (occurrence: US)
  Receive Date: 20130913
  Receipt Date: 20150204
  Transmission Date: 20150721
  Serious: Yes (Other)
  Sender: FDA-Public Use
  Company Number: US-BAYER-2013-110985

PATIENT
  Age: 22 Year
  Sex: Female
  Weight: 105.21 kg

DRUGS (2)
  1. ADDERALL [Concomitant]
     Active Substance: AMPHETAMINE ASPARTATE\AMPHETAMINE SULFATE\DEXTROAMPHETAMINE SACCHARATE\DEXTROAMPHETAMINE SULFATE
     Indication: ATTENTION DEFICIT/HYPERACTIVITY DISORDER
     Dosage: UNK
     Dates: start: 2007
  2. MIRENA [Suspect]
     Active Substance: LEVONORGESTREL
     Indication: CONTRACEPTION
     Dosage: 20 MCG/24HR, CONT
     Route: 015
     Dates: start: 20070724, end: 20110818

REACTIONS (9)
  - Pregnancy with contraceptive device [None]
  - Medical device discomfort [None]
  - Device dislocation [None]
  - Procedural pain [None]
  - Uterine perforation [None]
  - Medical device pain [None]
  - Drug ineffective [None]
  - Scar [None]
  - Injury [None]

NARRATIVE: CASE EVENT DATE: 200903
